FAERS Safety Report 9340360 (Version 1)
Quarter: 2013Q2

REPORT INFORMATION
  Report Type: Spontaneous
  Country: GB (occurrence: None)
  Receive Date: 20130605
  Receipt Date: 20130605
  Transmission Date: 20140414
  Serious: Yes (Life-Threatening, Hospitalization)
  Sender: FDA-Public Use
  Company Number: AUR-APL-2013-04387

PATIENT
  Age: 70 Year
  Sex: Male
  Weight: 93 kg

DRUGS (7)
  1. PIOGLITAZONE (PIOGLITAZONE) [Suspect]
     Indication: PRODUCT USED FOR UNKNOWN INDICATION
     Dates: start: 201009
  2. EZETIMIBE (EZETIMIBE) (TABLET) [Concomitant]
  3. METFORMIN (METFOMIN) [Concomitant]
  4. MIZOLASTINE (MIZOLASTINE) [Concomitant]
  5. NAPROXEN (NAPROXEN) [Concomitant]
  6. OMEPRAZOLE (OMEPRAZOLE) [Concomitant]
  7. QUININE SULPHATE (QUININE SULFATE) [Concomitant]

REACTIONS (1)
  - Pericardial effusion [None]
